FAERS Safety Report 24771431 (Version 1)
Quarter: 2024Q4

REPORT INFORMATION
  Report Type: Spontaneous
  Country: ES (occurrence: ES)
  Receive Date: 20241224
  Receipt Date: 20241224
  Transmission Date: 20250114
  Serious: Yes (Death, Hospitalization, Other)
  Sender: SANOFI AVENTIS
  Company Number: ES-EMA-DD-20241111-7482689-082035

PATIENT
  Age: 25 Year
  Sex: Male

DRUGS (5)
  1. PREDNISONE [Suspect]
     Active Substance: PREDNISONE
     Indication: Prophylaxis against graft versus host disease
     Dosage: UNK
     Dates: start: 2005
  2. FLUDARABINE PHOSPHATE [Suspect]
     Active Substance: FLUDARABINE PHOSPHATE
     Indication: Cord blood transplant therapy
     Dosage: 30 MG/M2, QD
     Dates: start: 2005, end: 2005
  3. CYCLOPHOSPHAMIDE [Suspect]
     Active Substance: CYCLOPHOSPHAMIDE
     Indication: Cord blood transplant therapy
     Dosage: 60 MG/KG, QD
     Dates: start: 2005, end: 2005
  4. ANTI-THYMOCYTE GLOBULIN (RABBIT) NOS [Suspect]
     Active Substance: LAPINE T-LYMPHOCYTE IMMUNE GLOBULIN
     Indication: Cord blood transplant therapy
     Dosage: 30 MG/KG, QD
     Dates: start: 2005
  5. CYCLOSPORINE [Suspect]
     Active Substance: CYCLOSPORINE
     Indication: Prophylaxis against graft versus host disease
     Dosage: UNK
     Dates: start: 2005, end: 2005

REACTIONS (7)
  - Multiple organ dysfunction syndrome [Fatal]
  - Encephalitis protozoal [Fatal]
  - Myocarditis [Fatal]
  - American trypanosomiasis [Fatal]
  - Condition aggravated [Fatal]
  - Pyrexia [Fatal]
  - Neuropsychological symptoms [Fatal]

NARRATIVE: CASE EVENT DATE: 20050101
